FAERS Safety Report 15173167 (Version 2)
Quarter: 2018Q3

REPORT INFORMATION
  Report Type: Spontaneous
  Country: DE (occurrence: DE)
  Receive Date: 20180720
  Receipt Date: 20180827
  Transmission Date: 20181010
  Serious: Yes (Hospitalization)
  Sender: FDA-Public Use
  Company Number: PHHY2015DE178019

PATIENT
  Age: 66 Year
  Sex: Female
  Weight: 83 kg

DRUGS (23)
  1. PACLITAXEL. [Suspect]
     Active Substance: PACLITAXEL
     Dosage: 168 MG, QW
     Route: 042
     Dates: start: 20140530
  2. METOPROLOL. [Concomitant]
     Active Substance: METOPROLOL
     Indication: PRODUCT USED FOR UNKNOWN INDICATION
     Dosage: 95 MG, QD
     Route: 048
     Dates: start: 2007
  3. PACLITAXEL. [Suspect]
     Active Substance: PACLITAXEL
     Indication: BREAST CANCER
     Dosage: 168 MG, QW
     Route: 042
     Dates: start: 20140102
  4. PACLITAXEL. [Suspect]
     Active Substance: PACLITAXEL
     Dosage: 168 MG, QW
     Route: 042
     Dates: start: 20140116
  5. PACLITAXEL. [Suspect]
     Active Substance: PACLITAXEL
     Dosage: 168 MG, QW
     Route: 042
     Dates: start: 20140410
  6. AVASTIN [Suspect]
     Active Substance: BEVACIZUMAB
     Dosage: 825 MG, Q2W
     Route: 042
     Dates: start: 20140306
  7. PACLITAXEL. [Suspect]
     Active Substance: PACLITAXEL
     Dosage: 168 MG, QW
     Route: 042
     Dates: start: 20140306
  8. PACLITAXEL. [Suspect]
     Active Substance: PACLITAXEL
     Dosage: 168 MG, QW
     Route: 042
     Dates: start: 20140313
  9. PACLITAXEL. [Suspect]
     Active Substance: PACLITAXEL
     Dosage: 168 MG, QW
     Route: 042
     Dates: start: 20140320
  10. PACLITAXEL. [Suspect]
     Active Substance: PACLITAXEL
     Dosage: 144 MG, QW
     Route: 042
     Dates: start: 20140618
  11. PACLITAXEL. [Suspect]
     Active Substance: PACLITAXEL
     Dosage: 168 MG, QW
     Route: 042
     Dates: start: 20140502
  12. PACLITAXEL. [Suspect]
     Active Substance: PACLITAXEL
     Dosage: 168 MG, QW
     Route: 042
     Dates: start: 20140516
  13. PACLITAXEL. [Suspect]
     Active Substance: PACLITAXEL
     Dosage: 168 MG, QW
     Route: 042
     Dates: start: 20140213
  14. PACLITAXEL. [Suspect]
     Active Substance: PACLITAXEL
     Dosage: 168 MG, QW
     Route: 042
     Dates: start: 20140220
  15. PACLITAXEL. [Suspect]
     Active Substance: PACLITAXEL
     Dosage: 168 MG, QW
     Route: 042
     Dates: start: 20140403
  16. AVASTIN [Suspect]
     Active Substance: BEVACIZUMAB
     Indication: BREAST CANCER METASTATIC
     Dosage: 825 MG, Q2W
     Route: 042
     Dates: start: 20140102
  17. AVASTIN [Suspect]
     Active Substance: BEVACIZUMAB
     Dosage: 1300 MG, Q3W
     Route: 042
     Dates: start: 20140723
  18. PACLITAXEL. [Suspect]
     Active Substance: PACLITAXEL
     Dosage: 168 MG, QW
     Route: 042
     Dates: start: 20140417
  19. PACLITAXEL. [Suspect]
     Active Substance: PACLITAXEL
     Dosage: 168 MG, QW
     Route: 042
     Dates: start: 20140509
  20. PACLITAXEL. [Suspect]
     Active Substance: PACLITAXEL
     Dosage: 168 MG, QW
     Route: 042
     Dates: start: 20140611
  21. AVASTIN [Suspect]
     Active Substance: BEVACIZUMAB
     Dosage: 1300 MG, Q3W
     Route: 042
     Dates: start: 20140813
  22. PACLITAXEL. [Suspect]
     Active Substance: PACLITAXEL
     Dosage: 168 MG, QW
     Route: 042
     Dates: start: 20140109
  23. PACLITAXEL. [Suspect]
     Active Substance: PACLITAXEL
     Dosage: 168 MG, QW
     Route: 042
     Dates: start: 20140206

REACTIONS (14)
  - Muscular weakness [Unknown]
  - Fatigue [Unknown]
  - Bone pain [Recovered/Resolved]
  - Dermoid cyst [Recovered/Resolved]
  - Constipation [Recovered/Resolved]
  - Gingival pain [Recovered/Resolved]
  - Alopecia [Recovered/Resolved]
  - Epistaxis [Recovered/Resolved]
  - Aphasia [Recovered/Resolved]
  - Decreased appetite [Recovered/Resolved]
  - Polyneuropathy [Recovered/Resolved]
  - Tremor [Recovered/Resolved]
  - Abdominal pain [Recovered/Resolved]
  - Blister [Recovered/Resolved]

NARRATIVE: CASE EVENT DATE: 20140104
